FAERS Safety Report 17404270 (Version 6)
Quarter: 2025Q4

REPORT INFORMATION
  Report Type: Spontaneous
  Country: EU (occurrence: EU)
  Receive Date: 20200211
  Receipt Date: 20251128
  Transmission Date: 20260118
  Serious: Yes (Other)
  Sender: UCB
  Company Number: EU-UCBSA-2020006070

PATIENT
  Age: 18 Year

DRUGS (10)
  1. LEVETIRACETAM [Suspect]
     Active Substance: LEVETIRACETAM
     Indication: Epilepsy
     Dosage: 1600 MILLIGRAM, DAILY
  2. LEVETIRACETAM [Suspect]
     Active Substance: LEVETIRACETAM
     Indication: Idiopathic generalised epilepsy
     Dosage: 1200 MILLIGRAM, DAILY
  3. LEVETIRACETAM [Suspect]
     Active Substance: LEVETIRACETAM
     Dosage: 1000 MILLIGRAM, DAILY
  4. LEVETIRACETAM [Suspect]
     Active Substance: LEVETIRACETAM
     Dosage: 1200 MILLIGRAM, DAILY
  5. LEVETIRACETAM [Suspect]
     Active Substance: LEVETIRACETAM
     Dosage: 1200 MILLIGRAM, ONCE A DAY (DOSE GRADUALLY REDUCED )
  6. HYDROXYZINE HYDROCHLORIDE [Suspect]
     Active Substance: HYDROXYZINE HYDROCHLORIDE
     Indication: Aggression
     Dosage: 60 MILLIGRAM, ONCE DAILY (QD), 60 MILLIGRAM, ONCE A DAY,60 MILLIGRAM DAILY; 60 MG/D IN 3 DIVIDED DOSES
  7. HYDROXYZINE HYDROCHLORIDE [Suspect]
     Active Substance: HYDROXYZINE HYDROCHLORIDE
     Indication: Off label use
  8. VALPROATE SODIUM [Suspect]
     Active Substance: VALPROATE SODIUM
     Indication: Epilepsy
     Dosage: UNKNOWN DOSE
  9. VALPROATE SODIUM [Suspect]
     Active Substance: VALPROATE SODIUM
     Indication: Idiopathic generalised epilepsy
  10. RISPERIDONE [Suspect]
     Active Substance: RISPERIDONE
     Indication: Aggression
     Dosage: 0.75 MG IN 2 DIVIDED DOSES

REACTIONS (5)
  - Aggression [Recovering/Resolving]
  - Hypersexuality [Recovering/Resolving]
  - Sexual dysfunction [Recovering/Resolving]
  - Off label use [Unknown]
  - Drug ineffective [Unknown]
